FAERS Safety Report 4478966-3 (Version None)
Quarter: 2004Q4

REPORT INFORMATION
  Report Type: 
  Country: None (occurrence: None)
  Receive Date: 20041015
  Receipt Date: 20041001
  Transmission Date: 20050328
  Serious: Yes (Hospitalization, Other)
  Sender: FDA-Public Use
  Company Number: HQWYE473201OCT04

PATIENT
  Age: 48 Year
  Sex: Female

DRUGS (7)
  1. EUPANTOL (PANTOPRAZOLE, TABLET, DELAYED RELEASE) [Suspect]
     Dosage: 40 MG 1X PER 1DAY; ORAL
     Route: 048
     Dates: start: 20040722, end: 20040726
  2. AUGMENTIN [Suspect]
     Indication: LUNG INFECTION
     Dosage: 3 G 1X PER 1 DAY; ORAL
     Route: 048
     Dates: start: 20040628, end: 20040701
  3. AUGMENTIN [Suspect]
     Indication: PAIN
     Dosage: 3 G 1X PER 1 DAY; ORAL
     Route: 048
     Dates: start: 20040628, end: 20040701
  4. CIFLOX (CIPROFLOXACIN, ) [Suspect]
     Indication: LUNG INFECTION
     Dosage: 500 MG 2X PER 1 DAY; ORAL
     Route: 048
     Dates: start: 20040722, end: 20040726
  5. CIFLOX (CIPROFLOXACIN, ) [Suspect]
     Indication: PAIN
     Dosage: 500 MG 2X PER 1 DAY; ORAL
     Route: 048
     Dates: start: 20040722, end: 20040726
  6. DICLOFENAC POTASSIUM (DICLOFENAC POTASSIM, ) [Suspect]
     Indication: LUNG INFECTION
     Dosage: 50 MG 3X PER 1 DAY; ORAL
     Route: 048
     Dates: start: 20040722, end: 20040726
  7. DICLOFENAC POTASSIUM (DICLOFENAC POTASSIM, ) [Suspect]
     Indication: PAIN
     Dosage: 50 MG 3X PER 1 DAY; ORAL
     Route: 048
     Dates: start: 20040722, end: 20040726

REACTIONS (2)
  - NEPHRITIS INTERSTITIAL [None]
  - RENAL FAILURE ACUTE [None]
